FAERS Safety Report 9902920 (Version 3)
Quarter: 2014Q1

REPORT INFORMATION
  Report Type: Report from Study
  Country: CA (occurrence: CA)
  Receive Date: 20140217
  Receipt Date: 20140319
  Transmission Date: 20141002
  Serious: Yes (Hospitalization, Other)
  Sender: FDA-Public Use
  Company Number: PHHY2012CA115885

PATIENT
  Age: 75 Year
  Sex: Male

DRUGS (1)
  1. SANDOSTATIN LAR [Suspect]
     Indication: GASTROINTESTINAL CARCINOMA
     Dosage: 30 MG, QMO
     Route: 030
     Dates: start: 20120305

REACTIONS (6)
  - Renal failure [Unknown]
  - Weight decreased [Unknown]
  - Vomiting [Unknown]
  - Nausea [Unknown]
  - Blood pressure increased [Unknown]
  - Abdominal pain [Unknown]
